FAERS Safety Report 4561311-2 (Version None)
Quarter: 2005Q1

REPORT INFORMATION
  Report Type: 
  Country: None (occurrence: None)
  Receive Date: 20050124
  Receipt Date: 20041214
  Transmission Date: 20050727
  Serious: Yes (Hospitalization)
  Sender: FDA-Public Use
  Company Number: 2001073171US

PATIENT
  Age: 53 Year
  Sex: Male

DRUGS (11)
  1. IRINOTECAN HCL [Suspect]
     Indication: SMALL CELL LUNG CANCER STAGE UNSPECIFIED
     Dosage: 100 MG/M2 (WEEKLY), INTRAVENOUS
     Route: 042
     Dates: start: 20010728, end: 20010820
  2. TOPOSAR [Suspect]
     Indication: SMALL CELL LUNG CANCER STAGE UNSPECIFIED
     Dosage: 60 MG/M2 (WEEKLY), INTRAVENOUS
     Route: 042
     Dates: start: 20010728, end: 20010820
  3. CISPLATIN [Suspect]
     Indication: SMALL CELL LUNG CANCER STAGE UNSPECIFIED
     Dosage: 20 MG/M2 (WEEKLY), INTRAVENOUS
     Route: 042
     Dates: start: 20010728, end: 20010820
  4. FENTANYL [Concomitant]
  5. MORPHINE SULFATE [Concomitant]
  6. STOMATOLOGICALS, MOUTH PREPARATIONS (STOMATOLOGICALS, MOUTH PREPARATIO [Concomitant]
  7. CIPROFLOXACIN [Concomitant]
  8. FENTANYL [Concomitant]
  9. OMEPRAZOLE [Concomitant]
  10. GRANULOCYTE COLONY STIMULATING FACTOR (GANULOCYTE COLONY STIMULATING F [Concomitant]
  11. NARINE REPETABS (LORATADINE, PSEUDOEPHEDRINE SULFATE) [Concomitant]

REACTIONS (7)
  - ANAEMIA [None]
  - DYSPHAGIA [None]
  - FEBRILE NEUTROPENIA [None]
  - HEADACHE [None]
  - PYREXIA [None]
  - RADIATION OESOPHAGITIS [None]
  - THROMBOCYTOPENIA [None]
